FAERS Safety Report 14779224 (Version 5)
Quarter: 2018Q3

REPORT INFORMATION
  Report Type: Spontaneous
  Country: AT (occurrence: AT)
  Receive Date: 20180419
  Receipt Date: 20180817
  Transmission Date: 20181010
  Serious: Yes (Other)
  Sender: FDA-Public Use
  Company Number: AT-PFIZER INC-2018155294

PATIENT
  Age: 57 Year
  Sex: Male

DRUGS (3)
  1. DOCETAXEL. [Suspect]
     Active Substance: DOCETAXEL
     Indication: NON-SMALL CELL LUNG CANCER
     Dosage: UNK
     Route: 042
     Dates: start: 201508, end: 201605
  2. VARGATEF [Suspect]
     Active Substance: NINTEDANIB
     Indication: NON-SMALL CELL LUNG CANCER
     Dosage: 200 MG, TWICE DAILY
     Dates: start: 201508, end: 201510
  3. VARGATEF [Suspect]
     Active Substance: NINTEDANIB
     Dosage: 150 MG, TWICE DAILY
     Dates: start: 201510, end: 201605

REACTIONS (6)
  - Neoplasm progression [Not Recovered/Not Resolved]
  - Polyneuropathy [Unknown]
  - Onychomadesis [Unknown]
  - Alopecia [Unknown]
  - Diarrhoea [Unknown]
  - Nausea [Unknown]

NARRATIVE: CASE EVENT DATE: 2015
